FAERS Safety Report 7091362-8 (Version None)
Quarter: 2010Q4

REPORT INFORMATION
  Report Type: 
  Country: None (occurrence: None)
  Receive Date: 20101109
  Receipt Date: 20101103
  Transmission Date: 20110411
  Serious: Yes (Hospitalization)
  Sender: FDA-Public Use
  Company Number: A0876107A

PATIENT
  Age: 80 Year
  Sex: Female

DRUGS (3)
  1. LAMICTAL [Suspect]
     Dosage: 50MG TWICE PER DAY
     Route: 048
     Dates: start: 20090501
  2. LAMOTRIGINE [Suspect]
     Route: 048
     Dates: start: 20100705, end: 20100713
  3. NO CONCURRENT MEDICATION [Concomitant]

REACTIONS (10)
  - ANGIOGRAM CEREBRAL [None]
  - ANTICONVULSANT DRUG LEVEL DECREASED [None]
  - ASPIRATION [None]
  - CONVULSION [None]
  - DRUG INEFFECTIVE [None]
  - DRUG LEVEL DECREASED [None]
  - LETHARGY [None]
  - MECHANICAL VENTILATION [None]
  - PNEUMONIA [None]
  - PNEUMONIA ASPIRATION [None]
